FAERS Safety Report 14629641 (Version 4)
Quarter: 2018Q4

REPORT INFORMATION
  Report Type: Report from Study
  Country: None (occurrence: US)
  Receive Date: 20180313
  Receipt Date: 20181217
  Transmission Date: 20190204
  Serious: Yes (Hospitalization, Other)
  Sender: FDA-Public Use
  Company Number: US-ABBVIE-18K-163-2246758-00

PATIENT
  Age: 61 Year
  Sex: Female

DRUGS (1)
  1. HUMIRA [Suspect]
     Active Substance: ADALIMUMAB
     Indication: RHEUMATOID ARTHRITIS
     Route: 058

REACTIONS (11)
  - Weight decreased [Unknown]
  - Sinus disorder [Not Recovered/Not Resolved]
  - Cellulitis [Unknown]
  - Back disorder [Not Recovered/Not Resolved]
  - Vomiting [Unknown]
  - Hiatus hernia [Unknown]
  - Skin laceration [Unknown]
  - Hip arthroplasty [Recovered/Resolved]
  - Peripheral swelling [Unknown]
  - Cough [Not Recovered/Not Resolved]
  - Eczema [Unknown]

NARRATIVE: CASE EVENT DATE: 2013
